FAERS Safety Report 26125615 (Version 1)
Quarter: 2025Q4

REPORT INFORMATION
  Report Type: Report from Study
  Country: US (occurrence: US)
  Receive Date: 20251205
  Receipt Date: 20251205
  Transmission Date: 20260118
  Serious: Yes (Other)
  Sender: AMGEN
  Company Number: US-AMGEN-USASL2025220791

PATIENT
  Age: 60 Year
  Sex: Male

DRUGS (3)
  1. TEPEZZA [Suspect]
     Active Substance: TEPROTUMUMAB-TRBW
     Indication: Toxic goitre
     Dosage: 10 MILLIGRAM/KILOGRAM, (10MG/KG GIVEN VIA IV ONCE)
     Route: 040
     Dates: start: 20250625
  2. TEPEZZA [Suspect]
     Active Substance: TEPROTUMUMAB-TRBW
     Dosage: 20 MILLIGRAM/KILOGRAM, Q3WK, SEVENTH INFUSION (THEN 20MG/KG GIVEN ONCE EVERY THREE WEEKS)
     Route: 040
     Dates: start: 2025
  3. TEPEZZA [Suspect]
     Active Substance: TEPROTUMUMAB-TRBW
     Dosage: 20 MILLIGRAM/KILOGRAM, Q3WK (EIGHTH INFUSION)
     Route: 040
     Dates: start: 20251121, end: 20251121

REACTIONS (6)
  - Pulmonary embolism [Unknown]
  - Myalgia [Unknown]
  - Abdominal pain [Unknown]
  - Ageusia [Not Recovered/Not Resolved]
  - Headache [Unknown]
  - Muscle spasms [Unknown]

NARRATIVE: CASE EVENT DATE: 20250101
